FAERS Safety Report 12442373 (Version 1)
Quarter: 2016Q2

REPORT INFORMATION
  Report Type: Spontaneous
  Country: US (occurrence: US)
  Receive Date: 20160607
  Receipt Date: 20160607
  Transmission Date: 20160815
  Serious: Yes (Other)
  Sender: FDA-Public Use
  Company Number: US-UNICHEM LABORATORIES LIMITED-UCM201605-000109

PATIENT
  Age: 13 Year
  Sex: Female

DRUGS (1)
  1. TOPIRAMATE. [Suspect]
     Active Substance: TOPIRAMATE
     Indication: MIGRAINE

REACTIONS (6)
  - Anorexia nervosa [Unknown]
  - Sinus bradycardia [Unknown]
  - Amenorrhoea [Unknown]
  - Asthenia [Unknown]
  - Product use issue [Unknown]
  - Electrocardiogram ST-T change [Unknown]
